FAERS Safety Report 22650057 (Version 4)
Quarter: 2023Q4

REPORT INFORMATION
  Report Type: Report from Study
  Country: TR (occurrence: TR)
  Receive Date: 20230628
  Receipt Date: 20231124
  Transmission Date: 20240110
  Serious: Yes (Life-Threatening)
  Sender: FDA-Public Use
  Company Number: TR-JAZZ PHARMACEUTICALS-2023-TR-012079

PATIENT
  Age: 57 Year
  Sex: Male

DRUGS (12)
  1. LURBINECTEDIN [Suspect]
     Active Substance: LURBINECTEDIN
     Indication: Small cell lung cancer extensive stage
     Dosage: 6.4 MILLIGRAM 1 IN 3 WEEK
     Route: 042
     Dates: start: 20230221, end: 20230425
  2. ATEZOLIZUMAB [Suspect]
     Active Substance: ATEZOLIZUMAB
     Indication: Small cell lung cancer extensive stage
     Dosage: 1200 MILLIGRAM 1 IN 3 WEEK
     Route: 042
     Dates: start: 20221107, end: 20230425
  3. CARBOPLATIN [Suspect]
     Active Substance: CARBOPLATIN
     Indication: Small cell lung cancer extensive stage
     Dosage: 450 MILLIGRAM 1 IN 3 WEEK
     Route: 042
     Dates: start: 20221107
  4. CARBOPLATIN [Suspect]
     Active Substance: CARBOPLATIN
     Dosage: 500 MILLIGRAM
     Route: 042
     Dates: start: 20230110
  5. ETOPOSIDE [Suspect]
     Active Substance: ETOPOSIDE
     Indication: Small cell lung cancer extensive stage
     Dosage: 180 MG,ON DAYS 1, 2, AND 3 OF EACH 21-DAY CYCLE
     Route: 042
     Dates: start: 20221107, end: 20230112
  6. GRANITRON [Concomitant]
     Dosage: UNK
     Dates: start: 20221107
  7. ESCITALOPRAM OXALATE [Concomitant]
     Active Substance: ESCITALOPRAM OXALATE
     Indication: Anxiety
     Dosage: UNK
     Dates: start: 20221129
  8. PHENIRAMINE MALEATE [Concomitant]
     Active Substance: PHENIRAMINE MALEATE
     Dosage: UNK
     Dates: start: 20221107
  9. GRANISETRON [Concomitant]
     Active Substance: GRANISETRON
     Dosage: UNK
     Dates: start: 20221107
  10. FRAVEN [Concomitant]
     Dosage: 48 IU 1 IN 3 WEEK
     Route: 058
     Dates: start: 20221107
  11. DEXAMETHASONE [Concomitant]
     Active Substance: DEXAMETHASONE
     Dosage: UNK
     Dates: start: 20230221
  12. FLURBIPROFEN [Concomitant]
     Active Substance: FLURBIPROFEN
     Indication: Oral pain
     Dosage: UNK
     Dates: start: 20230310

REACTIONS (1)
  - Thrombophlebitis [Recovered/Resolved]

NARRATIVE: CASE EVENT DATE: 20230529
